FAERS Safety Report 7426124-2 (Version None)
Quarter: 2011Q2

REPORT INFORMATION
  Report Type: 
  Country: None (occurrence: None)
  Receive Date: 20110420
  Receipt Date: 20110408
  Transmission Date: 20111010
  Serious: Yes (Other)
  Sender: FDA-Public Use
  Company Number: PHHY2011CA29855

PATIENT
  Sex: Male

DRUGS (1)
  1. CLOZARIL [Suspect]
     Dates: start: 20110301, end: 20110409

REACTIONS (3)
  - ELECTROCARDIOGRAM ABNORMAL [None]
  - EOSINOPHILIA [None]
  - TACHYCARDIA [None]
